FAERS Safety Report 25705804 (Version 1)
Quarter: 2025Q3

REPORT INFORMATION
  Report Type: Spontaneous
  Country: US (occurrence: None)
  Receive Date: 20250819
  Receipt Date: 20250819
  Transmission Date: 20251020
  Serious: Yes (Disabling)
  Sender: FDA-CTU
  Company Number: None

PATIENT
  Age: 54 Year
  Sex: Female
  Weight: 54 kg

DRUGS (2)
  1. HERBALS\MITRAGYNINE [Suspect]
     Active Substance: HERBALS\MITRAGYNINE
     Indication: Pain
  2. HERBALS\MITRAGYNINE [Concomitant]
     Active Substance: HERBALS\MITRAGYNINE

REACTIONS (12)
  - Dependence [None]
  - General physical health deterioration [None]
  - Impaired work ability [None]
  - Loss of personal independence in daily activities [None]
  - Insomnia [None]
  - Fatigue [None]
  - Hyperhidrosis [None]
  - Tremor [None]
  - Vomiting [None]
  - Delusion [None]
  - Psychotic disorder [None]
  - Withdrawal syndrome [None]

NARRATIVE: CASE EVENT DATE: 20240702
